FAERS Safety Report 9902990 (Version 1)
Quarter: 2014Q1

REPORT INFORMATION
  Report Type: Spontaneous
  Country: IT (occurrence: IT)
  Receive Date: 20140217
  Receipt Date: 20140217
  Transmission Date: 20141002
  Serious: Yes (Death, Other)
  Sender: FDA-Public Use
  Company Number: PHHY2014IT018723

PATIENT
  Sex: Female

DRUGS (16)
  1. CICLOSPORIN [Suspect]
     Indication: IMMUNOSUPPRESSION
     Dosage: 5 MG/KG, BID
  2. PREDNISONE [Suspect]
     Indication: IMMUNOSUPPRESSION
     Dosage: 0.5 MG/KG/DAY
  3. PREDNISONE [Suspect]
     Dosage: 50 MG, DAILY
  4. PREDNISONE [Suspect]
     Dosage: 20 MG DAILY
  5. AZATHIOPRINE [Suspect]
     Indication: IMMUNOSUPPRESSION
     Dosage: 1 MG/KG/ DAY
  6. AZATHIOPRINE [Suspect]
     Dosage: 20 MG, DAILY
  7. TACROLIMUS [Suspect]
     Indication: IMMUNOSUPPRESSION
     Dosage: 20 MG, DAILY
  8. TEMOCILLIN [Concomitant]
     Indication: BURKHOLDERIA INFECTION
     Route: 061
  9. TEMOCILLIN [Concomitant]
     Route: 042
  10. ANTIBIOTICS [Concomitant]
     Indication: BURKHOLDERIA INFECTION
  11. DORIPENEM [Concomitant]
     Indication: PSEUDOMONAS INFECTION
     Route: 042
  12. TOBRAMYCIN [Concomitant]
     Indication: INFECTIOUS PLEURAL EFFUSION
     Route: 042
  13. TOBRAMYCIN [Concomitant]
     Indication: ANTIBIOTIC THERAPY
     Route: 061
  14. VANCOMYCIN [Concomitant]
     Indication: PSEUDOMONAS INFECTION
     Route: 042
  15. CEFTAZIDIME [Concomitant]
     Indication: BURKHOLDERIA INFECTION
     Route: 042
  16. MEROPENEM [Concomitant]
     Indication: BURKHOLDERIA INFECTION
     Route: 042

REACTIONS (6)
  - Sepsis [Fatal]
  - Multi-organ failure [Fatal]
  - Cytomegalovirus infection [Unknown]
  - Nausea [Unknown]
  - Tremor [Unknown]
  - Lung transplant rejection [Unknown]
